FAERS Safety Report 7067863-5 (Version None)
Quarter: 2010Q4

REPORT INFORMATION
  Report Type: 
  Country: None (occurrence: None)
  Receive Date: 20101028
  Receipt Date: 20101015
  Transmission Date: 20110411
  Serious: Yes (Hospitalization, Other)
  Sender: FDA-Public Use
  Company Number: IT-PFIZER INC-2010130986

PATIENT
  Sex: Female

DRUGS (1)
  1. LYRICA [Suspect]
     Dosage: 75 MG

REACTIONS (4)
  - CEREBRAL HAEMORRHAGE [None]
  - CONCUSSION [None]
  - DIZZINESS [None]
  - FALL [None]
